FAERS Safety Report 5988682-4 (Version None)
Quarter: 2008Q4

REPORT INFORMATION
  Report Type: 
  Country: None (occurrence: None)
  Receive Date: 20081210
  Receipt Date: 20081201
  Transmission Date: 20090506
  Serious: Yes (Other)
  Sender: FDA-Public Use
  Company Number: PHEH2008US10084

PATIENT
  Age: 60 Year
  Sex: Female
  Weight: 57.596 kg

DRUGS (3)
  1. RECLAST [Suspect]
     Indication: OSTEOPOROSIS
     Dosage: 5 MG IV ONCE YEARLY
     Route: 042
     Dates: start: 20081106, end: 20081106
  2. ERGOCALCIFEROL [Concomitant]
     Dosage: 1 CAP WEEKLY
  3. BENADRYL ^ACHE^ [Concomitant]
     Dosage: 50 MG, PRN
     Route: 048

REACTIONS (4)
  - BLOOD PRESSURE DECREASED [None]
  - PALLOR [None]
  - SYNCOPE [None]
  - VERTIGO [None]
